FAERS Safety Report 18262298 (Version 1)
Quarter: 2020Q3

REPORT INFORMATION
  Report Type: Spontaneous
  Country: US (occurrence: US)
  Receive Date: 20200913
  Receipt Date: 20200913
  Transmission Date: 20201103
  Serious: Yes (Life-Threatening, Hospitalization)
  Sender: FDA-Public Use
  Company Number: None

PATIENT
  Age: 75 Year
  Sex: Male
  Weight: 72.9 kg

DRUGS (9)
  1. GABAPENTIN. [Concomitant]
     Active Substance: GABAPENTIN
  2. LISINOPRIL. [Concomitant]
     Active Substance: LISINOPRIL
  3. ASPIRIN. [Concomitant]
     Active Substance: ASPIRIN
  4. OMEPRAZOLE. [Concomitant]
     Active Substance: OMEPRAZOLE
  5. ATORVASTATIN [Concomitant]
     Active Substance: ATORVASTATIN
  6. DESMOPRESSIN ACETATE NASAL SPRAY [Suspect]
     Active Substance: DESMOPRESSIN ACETATE
     Indication: URINARY INCONTINENCE
     Dosage: ?          OTHER STRENGTH:MCG PER ML;QUANTITY:1 SPRAY(S);OTHER ROUTE:SPRAYED INTO THE NOSE?
     Route: 045
     Dates: start: 20200527, end: 20200528
  7. ALEVE [Concomitant]
     Active Substance: NAPROXEN SODIUM
  8. ALLOPURINOL. [Concomitant]
     Active Substance: ALLOPURINOL
  9. METHOCARBAMOL. [Concomitant]
     Active Substance: METHOCARBAMOL

REACTIONS (5)
  - Shock [None]
  - Sepsis [None]
  - General physical health deterioration [None]
  - Hypertension [None]
  - Renal disorder [None]

NARRATIVE: CASE EVENT DATE: 20200531
